FAERS Safety Report 8932510 (Version 1)
Quarter: 2012Q4

REPORT INFORMATION
  Report Type: Spontaneous
  Country: US (occurrence: None)
  Receive Date: 20121121
  Receipt Date: 20121121
  Transmission Date: 20130627
  Serious: Yes (Other)
  Sender: FDA-Public Use
  Company Number: None

PATIENT
  Age: 52 Year
  Sex: Female
  Weight: 79.83 kg

DRUGS (2)
  1. MELOXICAM 7.5 [Suspect]
     Indication: BAKER^S CYST
     Dates: start: 20121010
  2. MELOXICAM 7.5 [Suspect]
     Indication: ARTHRITIS
     Dates: start: 20121010

REACTIONS (4)
  - Heart rate increased [None]
  - Middle insomnia [None]
  - Confusional state [None]
  - Dizziness [None]
